FAERS Safety Report 21360742 (Version 1)
Quarter: 2022Q3

REPORT INFORMATION
  Report Type: Report from Study
  Country: US (occurrence: US)
  Receive Date: 20220921
  Receipt Date: 20220921
  Transmission Date: 20221027
  Serious: Yes (Hospitalization)
  Sender: FDA-Public Use
  Company Number: US-HORIZON THERAPEUTICS-HZN-2022-007140

PATIENT

DRUGS (2)
  1. RAVICTI [Suspect]
     Active Substance: GLYCEROL PHENYLBUTYRATE
     Indication: Urea cycle disorder
     Dosage: UNK
     Route: 065
     Dates: start: 20210810
  2. RAVICTI [Suspect]
     Active Substance: GLYCEROL PHENYLBUTYRATE
     Dosage: 4.5 ML, TID
     Route: 065

REACTIONS (4)
  - Malaise [Unknown]
  - Increased appetite [Unknown]
  - Product communication issue [Unknown]
  - Incorrect dose administered [Unknown]
